FAERS Safety Report 13414744 (Version 1)
Quarter: 2017Q2

REPORT INFORMATION
  Report Type: Report from Study
  Country: None (occurrence: US)
  Receive Date: 20170407
  Receipt Date: 20170407
  Transmission Date: 20170830
  Serious: Yes (Other)
  Sender: FDA-Public Use
  Company Number: US-ABBVIE-16K-163-1806085-00

PATIENT
  Sex: Female

DRUGS (1)
  1. HUMIRA [Suspect]
     Active Substance: ADALIMUMAB
     Indication: CROHN^S DISEASE
     Route: 058
     Dates: start: 20150817

REACTIONS (11)
  - Gastrointestinal haemorrhage [Recovering/Resolving]
  - Nerve injury [Not Recovered/Not Resolved]
  - Nausea [Recovered/Resolved]
  - Back pain [Recovering/Resolving]
  - Haemorrhagic ovarian cyst [Not Recovered/Not Resolved]
  - Muscle mass [Unknown]
  - Constipation [Not Recovered/Not Resolved]
  - Nausea [Recovering/Resolving]
  - Fatigue [Recovering/Resolving]
  - Crohn^s disease [Recovering/Resolving]
  - Injection site pain [Recovered/Resolved]

NARRATIVE: CASE EVENT DATE: 2015
